FAERS Safety Report 9264353 (Version 1)
Quarter: 2013Q2

REPORT INFORMATION
  Report Type: Spontaneous
  Country: PH (occurrence: PH)
  Receive Date: 20130430
  Receipt Date: 20130430
  Transmission Date: 20140414
  Serious: Yes (Hospitalization)
  Sender: FDA-Public Use
  Company Number: PH-009507513-1304PHL016854

PATIENT
  Age: 60 Year
  Sex: Female

DRUGS (2)
  1. REBETOL [Suspect]
     Indication: HEPATITIS C VIRUS TEST POSITIVE
     Dosage: 1000 MG, DAILY
     Route: 048
  2. PEG-INTRON REDIPEN [Suspect]
     Indication: HEPATITIS C VIRUS TEST POSITIVE
     Dosage: 0.5 ML, QW
     Route: 058
     Dates: start: 20130214

REACTIONS (2)
  - Neutrophil count decreased [Unknown]
  - Haemoglobin decreased [Unknown]
